FAERS Safety Report 16438527 (Version 1)
Quarter: 2019Q2

REPORT INFORMATION
  Report Type: Spontaneous
  Country: US (occurrence: US)
  Receive Date: 20190617
  Receipt Date: 20190617
  Transmission Date: 20190711
  Serious: Yes (Death, Hospitalization, Other)
  Sender: FDA-Public Use
  Company Number: US-LUPIN PHARMACEUTICALS INC.-2019-03646

PATIENT
  Age: 25 Year
  Sex: Female

DRUGS (4)
  1. FLUOXETINE [Suspect]
     Active Substance: FLUOXETINE HYDROCHLORIDE
     Indication: ANXIETY
     Dosage: UNK
     Route: 065
  2. LITHIUM. [Interacting]
     Active Substance: LITHIUM
     Indication: DEPRESSION
  3. LITHIUM. [Interacting]
     Active Substance: LITHIUM
     Indication: ANXIETY
     Route: 065
  4. FLUOXETINE [Interacting]
     Active Substance: FLUOXETINE HYDROCHLORIDE
     Indication: DEPRESSION

REACTIONS (8)
  - Mental status changes [Unknown]
  - Respiration abnormal [Unknown]
  - Serotonin syndrome [Fatal]
  - Tachypnoea [Unknown]
  - Drug interaction [Fatal]
  - Ataxia [Unknown]
  - Substance use [Fatal]
  - Cardio-respiratory arrest [Fatal]
